FAERS Safety Report 5337978-8 (Version None)
Quarter: 2007Q2

REPORT INFORMATION
  Report Type: 
  Country: None (occurrence: None)
  Receive Date: 20070327
  Receipt Date: 20061219
  Transmission Date: 20071010
  Serious: Yes (Other)
  Sender: FDA-Public Use
  Company Number: 232817

PATIENT

DRUGS (5)
  1. AVASTIN [Suspect]
     Indication: BREAST CANCER RECURRENT
     Dosage: 10 MG/KG, Q2W, INTRAVENOUS
     Route: 042
     Dates: start: 20060712, end: 20061018
  2. NAVELBINE [Concomitant]
  3. CARDENE SR [Concomitant]
  4. PREVACID [Concomitant]
  5. MAXZIDE [Concomitant]

REACTIONS (1)
  - SPLENIC HAEMATOMA [None]
